FAERS Safety Report 16538987 (Version 4)
Quarter: 2019Q3

REPORT INFORMATION
  Report Type: Spontaneous
  Country: FR (occurrence: FR)
  Receive Date: 20190708
  Receipt Date: 20190817
  Transmission Date: 20191004
  Serious: Yes (Hospitalization, Other)
  Sender: FDA-Public Use
  Company Number: FR-AUROBINDO-AUR-APL-2019-001622

PATIENT

DRUGS (6)
  1. TERBUTALINE [Suspect]
     Active Substance: TERBUTALINE
     Indication: ASTHMA
     Dosage: UNK, ONE AEROSOL
     Route: 055
  2. TERBUTALINE [Suspect]
     Active Substance: TERBUTALINE
     Dosage: INITIAL DOSE
     Route: 055
  3. TERBUTALINE [Suspect]
     Active Substance: TERBUTALINE
     Dosage: UNK, 2 SERIES OF THREE AEROSOL
     Route: 055
  4. IPRATROPIUM [Suspect]
     Active Substance: IPRATROPIUM
     Dosage: TWO NEW SERIES OF THREE AEROSOL DOSES
     Route: 055
  5. IPRATROPIUM [Suspect]
     Active Substance: IPRATROPIUM
     Indication: ASTHMA
     Dosage: UNK, ONE AEROSOL
     Route: 055
  6. SALBUTAMOL [Suspect]
     Active Substance: ALBUTEROL
     Indication: ASTHMA
     Dosage: RECEIVED AT HOME
     Route: 055

REACTIONS (4)
  - Metabolic acidosis [Recovered/Resolved]
  - Hyperlactacidaemia [Recovered/Resolved]
  - Blood lactic acid increased [Recovered/Resolved]
  - Treatment failure [Unknown]
